FAERS Safety Report 6443997-0 (Version None)
Quarter: 2009Q4

REPORT INFORMATION
  Report Type: 
  Country: None (occurrence: None)
  Receive Date: 20091116
  Receipt Date: 20091116
  Transmission Date: 20100525
  Serious: No
  Sender: FDA-Public Use
  Company Number: None

PATIENT
  Sex: Female
  Weight: 54.4316 kg

DRUGS (1)
  1. CREST PRO HEALTH ENAMEL SHIELD PROCTOR AND GAMBLE [Suspect]
     Indication: DENTAL CLEANING
     Dosage: SMALL AMOUNT 2X DAILY, 2 MIN. EACH, DENTAL
     Route: 004
     Dates: start: 20091109, end: 20091112

REACTIONS (4)
  - EATING DISORDER [None]
  - GLOSSODYNIA [None]
  - LIP SWELLING [None]
  - STOMATITIS [None]
